FAERS Safety Report 5177084-9 (Version None)
Quarter: 2006Q4

REPORT INFORMATION
  Report Type: 
  Country: None (occurrence: None)
  Receive Date: 20061207
  Receipt Date: 20061130
  Transmission Date: 20070319
  Serious: Yes (Hospitalization)
  Sender: FDA-Public Use
  Company Number: KADN20060047

PATIENT
  Age: 46 Year
  Sex: Female
  Weight: 92.0802 kg

DRUGS (4)
  1. KADIAN [Suspect]
     Indication: BACK PAIN
     Dosage: 100 MG BID PO
     Route: 048
     Dates: start: 20030101, end: 20061110
  2. TOPAMAX [Concomitant]
  3. NEURONTIN [Concomitant]
  4. SEROQUEL [Concomitant]

REACTIONS (5)
  - ANXIETY [None]
  - DRUG WITHDRAWAL SYNDROME [None]
  - INSOMNIA [None]
  - RESTLESSNESS [None]
  - SMALL INTESTINAL OBSTRUCTION [None]
